FAERS Safety Report 18053950 (Version 3)
Quarter: 2023Q1

REPORT INFORMATION
  Report Type: Spontaneous
  Country: US (occurrence: US)
  Receive Date: 20200722
  Receipt Date: 20230117
  Transmission Date: 20230417
  Serious: No
  Sender: FDA-Public Use
  Company Number: US-PFIZER INC-2020278492

PATIENT
  Age: 44 Year
  Sex: Female

DRUGS (1)
  1. IBRANCE [Suspect]
     Active Substance: PALBOCICLIB
     Dosage: 100 MG

REACTIONS (1)
  - Somnolence [Unknown]
